FAERS Safety Report 8158890-5 (Version None)
Quarter: 2012Q1

REPORT INFORMATION
  Report Type: 
  Country: None (occurrence: None)
  Receive Date: 20120223
  Receipt Date: 20120213
  Transmission Date: 20120608
  Serious: Yes (Other)
  Sender: FDA-Public Use
  Company Number: US-BRISTOL-MYERS SQUIBB COMPANY-16396830

PATIENT
  Age: 51 Year
  Sex: Male
  Weight: 100 kg

DRUGS (2)
  1. AVALIDE [Suspect]
     Indication: HYPERTENSION
  2. DILTIAZEM [Suspect]

REACTIONS (4)
  - HYPERCALCAEMIA [None]
  - ALLERGY TO ARTHROPOD STING [None]
  - OSTEOPENIA [None]
  - PAIN [None]
